FAERS Safety Report 12705997 (Version 2)
Quarter: 2016Q3

REPORT INFORMATION
  Report Type: Spontaneous
  Country: US (occurrence: US)
  Receive Date: 20160901
  Receipt Date: 20160901
  Transmission Date: 20161109
  Serious: No
  Sender: FDA-Public Use
  Company Number: US-JAZZ-2016-US-007732

PATIENT
  Sex: Female

DRUGS (15)
  1. PATANOL [Concomitant]
     Active Substance: OLOPATADINE HYDROCHLORIDE
  2. XYREM [Suspect]
     Active Substance: SODIUM OXYBATE
     Indication: NARCOLEPSY
     Dosage: 2.25 G, BID
     Route: 048
     Dates: start: 201603, end: 201603
  3. XYREM [Suspect]
     Active Substance: SODIUM OXYBATE
     Dosage: DOSE ADJUSTMENTS
     Route: 048
  4. ADVAIR HFA [Concomitant]
     Active Substance: FLUTICASONE PROPIONATE\SALMETEROL XINAFOATE
  5. CYCLOBENZAPRINE [Concomitant]
     Active Substance: CYCLOBENZAPRINE
  6. SYNTHROID [Concomitant]
     Active Substance: LEVOTHYROXINE SODIUM
  7. NUVIGIL [Concomitant]
     Active Substance: ARMODAFINIL
  8. XANAX [Concomitant]
     Active Substance: ALPRAZOLAM
  9. VENTOLIN HFA [Concomitant]
     Active Substance: ALBUTEROL SULFATE
  10. XYREM [Suspect]
     Active Substance: SODIUM OXYBATE
     Dosage: 4.5 G, BID
     Route: 048
     Dates: start: 201604
  11. CELEXA [Concomitant]
     Active Substance: CITALOPRAM HYDROBROMIDE
  12. LINZESS [Concomitant]
     Active Substance: LINACLOTIDE
  13. IBUPROFEN. [Concomitant]
     Active Substance: IBUPROFEN
  14. MIRENA [Concomitant]
     Active Substance: LEVONORGESTREL
  15. TRIAZOLAM. [Concomitant]
     Active Substance: TRIAZOLAM

REACTIONS (2)
  - Chest pain [Not Recovered/Not Resolved]
  - Anxiety [Unknown]
